FAERS Safety Report 10948382 (Version 1)
Quarter: 2015Q1

REPORT INFORMATION
  Report Type: Spontaneous
  Country: EG (occurrence: EG)
  Receive Date: 20150324
  Receipt Date: 20150324
  Transmission Date: 20150721
  Serious: Yes (Hospitalization, Other)
  Sender: FDA-Public Use
  Company Number: EG-NOVOPROD-442327

PATIENT
  Age: 48 Year
  Sex: Female
  Weight: 83 kg

DRUGS (6)
  1. MIXTARD HUMAN 70/30 [Suspect]
     Active Substance: INSULIN HUMAN
     Dosage: 40 UNITS AT MORNING AND 30 UNITS AT EVENING
     Route: 065
     Dates: end: 201408
  2. CONCOR PLUS [Concomitant]
     Active Substance: BISOPROLOL FUMARATE\HYDROCHLOROTHIAZIDE
     Indication: HYPERTENSION
     Dosage: 1 TAB, QD
  3. MIXTARD 30 HM PENFILL [Suspect]
     Active Substance: INSULIN HUMAN
     Indication: PRODUCT USED FOR UNKNOWN INDICATION
     Dosage: 40 UNITS AT MORNING AND 30 UNITS AT EVENING
     Route: 065
     Dates: start: 201408, end: 201409
  4. MIXTARD HUMAN 70/30 [Suspect]
     Active Substance: INSULIN HUMAN
     Dosage: 40/UNITS AT MORNING AND 30 UNITS AT EVENING
     Route: 065
  5. MIXTARD HUMAN 70/30 [Suspect]
     Active Substance: INSULIN HUMAN
     Indication: PRODUCT USED FOR UNKNOWN INDICATION
     Dosage: 30 UNITS AT MORNING, 20 UNITS AT EVENING
     Route: 065
  6. NITROMACK [Concomitant]
     Dosage: 1 TAB

REACTIONS (4)
  - Amputation [None]
  - Gangrene [Recovered/Resolved]
  - Hyperglycaemia [Recovered/Resolved]
  - Neuritis [Recovered/Resolved]

NARRATIVE: CASE EVENT DATE: 201407
